FAERS Safety Report 14770526 (Version 3)
Quarter: 2018Q2

REPORT INFORMATION
  Report Type: Spontaneous
  Country: JP (occurrence: JP)
  Receive Date: 20180417
  Receipt Date: 20180530
  Transmission Date: 20180711
  Serious: Yes (Other)
  Sender: FDA-Public Use
  Company Number: JP-PFIZER INC-2018148554

PATIENT
  Age: 40 Year
  Sex: Female

DRUGS (2)
  1. HYSRON H [Suspect]
     Active Substance: MEDROXYPROGESTERONE
     Indication: ENDOMETRIAL CANCER
     Dosage: 600 MG, DAILY
     Route: 048
  2. MEDROXYPROGESTERONE ACETATE. [Suspect]
     Active Substance: MEDROXYPROGESTERONE ACETATE
     Indication: ENDOMETRIAL CANCER
     Dosage: 600 MG, DAILY
     Route: 048

REACTIONS (5)
  - Hyperglucagonaemia [Unknown]
  - Blood insulin increased [Unknown]
  - Multiple endocrine neoplasia Type 1 [None]
  - Hyperparathyroidism primary [None]
  - Parathyroid hyperplasia [None]
